FAERS Safety Report 21621032 (Version 1)
Quarter: 2022Q4

REPORT INFORMATION
  Report Type: Spontaneous
  Country: US (occurrence: None)
  Receive Date: 20221118
  Receipt Date: 20221118
  Transmission Date: 20230113
  Serious: No
  Sender: FDA-Public Use
  Company Number: None

PATIENT
  Age: 61 Year
  Sex: Female

DRUGS (1)
  1. REPATHA [Suspect]
     Active Substance: EVOLOCUMAB
     Indication: Hyperlipidaemia
     Dates: start: 202103, end: 202209

REACTIONS (9)
  - Rash erythematous [None]
  - Rash [None]
  - Injection site rash [None]
  - Lethargy [None]
  - Dizziness [None]
  - Asthenia [None]
  - Asthenia [None]
  - Agitation [None]
  - Fatigue [None]
